FAERS Safety Report 9417877 (Version 1)
Quarter: 2013Q3

REPORT INFORMATION
  Report Type: Spontaneous
  Country: US (occurrence: US)
  Receive Date: 20130724
  Receipt Date: 20130724
  Transmission Date: 20140515
  Serious: No
  Sender: FDA-Public Use
  Company Number: US-BAYER-2013-089772

PATIENT
  Age: 25 Year
  Sex: Female

DRUGS (3)
  1. BETASERON [Suspect]
     Dosage: 3 MG, UNK
  2. ADVIL [Concomitant]
     Dosage: 200 MG, UNK
  3. TYLENOL [PARACETAMOL] [Concomitant]
     Dosage: 325 MG, UNK

REACTIONS (4)
  - Injection site erythema [Unknown]
  - Injection site pain [Unknown]
  - Injection site swelling [Unknown]
  - Injection site dryness [Unknown]
